FAERS Safety Report 8177971-3 (Version None)
Quarter: 2012Q1

REPORT INFORMATION
  Report Type: 
  Country: None (occurrence: None)
  Receive Date: 20120130
  Receipt Date: 20110708
  Transmission Date: 20120608
  Serious: Yes (Hospitalization)
  Sender: FDA-Public Use
  Company Number: 034755

PATIENT
  Sex: Male

DRUGS (3)
  1. FERROUS SULFATE TAB [Concomitant]
  2. BENADRYL [Concomitant]
  3. KEPPRA [Suspect]
     Dosage: UNKNOWN DOSE

REACTIONS (5)
  - HEART RATE DECREASED [None]
  - PYREXIA [None]
  - SKIN EXFOLIATION [None]
  - HEADACHE [None]
  - HYPERSENSITIVITY [None]
